FAERS Safety Report 9198877 (Version 1)
Quarter: 2013Q1

REPORT INFORMATION
  Report Type: Report from Study
  Country: GB (occurrence: GB)
  Receive Date: 20130329
  Receipt Date: 20130329
  Transmission Date: 20140127
  Serious: Yes (Disabling)
  Sender: FDA-Public Use
  Company Number: GB-009507513-1303GBR013020

PATIENT
  Age: 47 Year
  Sex: Male

DRUGS (2)
  1. VORINOSTAT [Suspect]
     Indication: PLASMA CELL MYELOMA
     Dosage: 300 MG, DAYS 1-7, 15-21
     Dates: start: 20130110, end: 20130306
  2. LENALIDOMIDE [Suspect]
     Dosage: 10 MG, QD FOR 21 DAYS
     Dates: start: 20130110, end: 20130306

REACTIONS (1)
  - Pulmonary mass [Not Recovered/Not Resolved]
